FAERS Safety Report 7618830-1 (Version None)
Quarter: 2011Q3

REPORT INFORMATION
  Report Type: 
  Country: None (occurrence: None)
  Receive Date: 20110718
  Receipt Date: 20110713
  Transmission Date: 20111222
  Serious: Yes (Other)
  Sender: FDA-Public Use
  Company Number: BR-PFIZER INC-2009202239

PATIENT
  Age: 50 Year
  Sex: Male
  Weight: 83 kg

DRUGS (8)
  1. ALDACTONE [Suspect]
     Indication: HYPERTENSION
     Dosage: 25 MG, 1X/DAY
     Route: 048
     Dates: start: 20070801
  2. ALDACTONE [Suspect]
     Indication: SWELLING
     Dosage: 25 MG, 1X/DAY
     Route: 048
  3. ANCORON [Concomitant]
     Indication: ARRHYTHMIA
     Dosage: 200 MG, UNK
     Dates: start: 20060101
  4. ALDACTONE [Suspect]
     Indication: CARDIAC DISORDER
     Dosage: 50 MG, 1X/DAY
     Route: 048
  5. ENALAPRIL [Concomitant]
     Indication: HYPERTENSION
     Dosage: UNK
     Dates: start: 20060101
  6. FORMOTEROL FUMARATE [Concomitant]
     Indication: ASTHMA
     Dosage: 12 MG/ 400 MG, UNK
     Dates: start: 20070101
  7. HYDROCHLOROTHIAZIDE [Concomitant]
     Indication: HYPERTENSION
     Dosage: UNK
  8. DIAZEPAM [Concomitant]
     Indication: INSOMNIA
     Dosage: 10 MG, UNK
     Dates: start: 19990101

REACTIONS (16)
  - TOOTHACHE [None]
  - MALAISE [None]
  - BLOOD URIC ACID DECREASED [None]
  - WEIGHT INCREASED [None]
  - ELECTROCARDIOGRAM ABNORMAL [None]
  - DYSPNOEA [None]
  - HAEMOPTYSIS [None]
  - HEART RATE INCREASED [None]
  - SOMNOLENCE [None]
  - BREAST PAIN [None]
  - HYPOAESTHESIA [None]
  - FATIGUE [None]
  - SOFT TISSUE INFLAMMATION [None]
  - OEDEMA PERIPHERAL [None]
  - COUGH [None]
  - HEADACHE [None]
